FAERS Safety Report 5523304-8 (Version None)
Quarter: 2007Q4

REPORT INFORMATION
  Report Type: 
  Country: None (occurrence: None)
  Receive Date: 20071121
  Receipt Date: 20071120
  Transmission Date: 20080405
  Serious: Yes (Other)
  Sender: FDA-Public Use
  Company Number: A0695312A

PATIENT
  Age: 74 Year
  Sex: Male

DRUGS (4)
  1. NICORETTE (MINT) [Suspect]
     Indication: DRUG WITHDRAWAL MAINTENANCE THERAPY
     Route: 002
  2. LISINOPRIL [Concomitant]
     Indication: HYPERTENSION
  3. SELEGILINE HCL [Concomitant]
  4. UNSPECIFIED MEDICATION [Concomitant]

REACTIONS (4)
  - DEPENDENCE [None]
  - MENTAL IMPAIRMENT [None]
  - NICOTINE DEPENDENCE [None]
  - OVERDOSE [None]
